FAERS Safety Report 4522829-1 (Version None)
Quarter: 2004Q4

REPORT INFORMATION
  Report Type: 
  Country: None (occurrence: None)
  Receive Date: 20041207
  Receipt Date: 20041124
  Transmission Date: 20050328
  Serious: Yes (Other)
  Sender: FDA-Public Use
  Company Number: HQWYE695529NOV04

PATIENT
  Age: 55 Year
  Sex: Male

DRUGS (6)
  1. EFFEXOR XR [Suspect]
     Indication: AGORAPHOBIA
     Dosage: 150 MG 1X PER 1 DAY ORAL; 75 MG 1X PER 1 DAY ORAL
     Route: 048
     Dates: start: 19990101, end: 20041122
  2. EFFEXOR XR [Suspect]
     Indication: DEPRESSION
     Dosage: 150 MG 1X PER 1 DAY ORAL; 75 MG 1X PER 1 DAY ORAL
     Route: 048
     Dates: start: 19990101, end: 20041122
  3. EFFEXOR XR [Suspect]
     Indication: AGORAPHOBIA
     Dosage: 150 MG 1X PER 1 DAY ORAL; 75 MG 1X PER 1 DAY ORAL
     Route: 048
     Dates: start: 20041123
  4. EFFEXOR XR [Suspect]
     Indication: DEPRESSION
     Dosage: 150 MG 1X PER 1 DAY ORAL; 75 MG 1X PER 1 DAY ORAL
     Route: 048
     Dates: start: 20041123
  5. CLONAZEPAM [Concomitant]
  6. LOSEC (OMEPRAZOLE) [Concomitant]

REACTIONS (5)
  - DRUG WITHDRAWAL SYNDROME [None]
  - FALL [None]
  - METASTASIS [None]
  - NEOPLASM MALIGNANT [None]
  - TREMOR [None]
